FAERS Safety Report 17861034 (Version 1)
Quarter: 2020Q2

REPORT INFORMATION
  Report Type: Spontaneous
  Country: FR (occurrence: FR)
  Receive Date: 20200604
  Receipt Date: 20200604
  Transmission Date: 20200714
  Serious: Yes (Hospitalization)
  Sender: FDA-Public Use
  Company Number: FR-MYLANLABS-2020M1053860

PATIENT
  Age: 66 Year
  Sex: Female
  Weight: 40 kg

DRUGS (19)
  1. MAG 2                              /00454301/ [Concomitant]
     Active Substance: MAGNESIUM CARBONATE
  2. ACTISKENAN [Concomitant]
     Active Substance: MORPHINE SULFATE
  3. PRIMPERAN [Concomitant]
     Active Substance: METOCLOPRAMIDE HYDROCHLORIDE
  4. ACUPAN [Concomitant]
     Active Substance: NEFOPAM HYDROCHLORIDE
  5. PACLITAXEL. [Suspect]
     Active Substance: PACLITAXEL
     Indication: SQUAMOUS CELL CARCINOMA OF THE CERVIX
     Dosage: 83 MILLIGRAM, CYCLE
     Route: 042
     Dates: start: 201912, end: 20200421
  6. EMEND [Concomitant]
     Active Substance: APREPITANT
  7. EMLA [Concomitant]
     Active Substance: LIDOCAINE\PRILOCAINE
  8. GRANIONS DE ZINC [Concomitant]
  9. DIFFU K [Concomitant]
     Active Substance: POTASSIUM CHLORIDE
  10. SERESTA [Concomitant]
     Active Substance: OXAZEPAM
  11. DUPHALAC [Concomitant]
     Active Substance: LACTULOSE
  12. ONDANSETRON [Concomitant]
     Active Substance: ONDANSETRON
  13. FAMOTIDINE. [Concomitant]
     Active Substance: FAMOTIDINE
  14. CARBOPLATIN. [Suspect]
     Active Substance: CARBOPLATIN
     Indication: SQUAMOUS CELL CARCINOMA OF THE CERVIX
     Dosage: 135 MILLIGRAM, CYCLE
     Route: 042
     Dates: start: 20200203, end: 20200421
  15. AVASTIN [Suspect]
     Active Substance: BEVACIZUMAB
     Indication: SQUAMOUS CELL CARCINOMA OF THE CERVIX
     Dosage: 400 MILLIGRAM, CYCLE
     Route: 042
     Dates: start: 20200406, end: 20200421
  16. ZYMAD [Concomitant]
     Active Substance: CHOLECALCIFEROL
  17. DUROGESIC [Concomitant]
     Active Substance: FENTANYL
  18. DEBRIDAT                           /00465202/ [Concomitant]
     Active Substance: TRIMEBUTINE
  19. NOCTAMIDE [Concomitant]
     Active Substance: LORMETAZEPAM

REACTIONS (1)
  - Posterior reversible encephalopathy syndrome [Recovered/Resolved]

NARRATIVE: CASE EVENT DATE: 20200511
